FAERS Safety Report 5496395-0 (Version None)
Quarter: 2007Q4

REPORT INFORMATION
  Report Type: 
  Country: None (occurrence: None)
  Receive Date: 20071025
  Receipt Date: 20070501
  Transmission Date: 20080405
  Serious: No
  Sender: FDA-Public Use
  Company Number: A0645789A

PATIENT
  Sex: Female
  Weight: 118.2 kg

DRUGS (4)
  1. ADVAIR DISKUS 100/50 [Suspect]
     Indication: ASTHMA
     Dosage: 2PUFF PER DAY
     Route: 055
     Dates: start: 20020101
  2. AVAPRO [Concomitant]
  3. CARDIZEM [Concomitant]
  4. TRIAMTERENE [Concomitant]

REACTIONS (1)
  - DENTAL CARIES [None]
